FAERS Safety Report 12676124 (Version 3)
Quarter: 2016Q4

REPORT INFORMATION
  Report Type: Report from Study
  Country: US (occurrence: US)
  Receive Date: 20160823
  Receipt Date: 20161103
  Transmission Date: 20170207
  Serious: Yes (Other)
  Sender: FDA-Public Use
  Company Number: US-AMGEN-USASP2016108225

PATIENT
  Age: 75 Year
  Sex: Female

DRUGS (1)
  1. ENBREL [Suspect]
     Active Substance: ETANERCEPT
     Indication: RHEUMATOID ARTHRITIS
     Dosage: 25 MG, 2 TIMES/WK
     Route: 065
     Dates: start: 2015

REACTIONS (9)
  - Rheumatoid arthritis [Not Recovered/Not Resolved]
  - Unevaluable event [Recovering/Resolving]
  - Fatigue [Unknown]
  - Infection [Unknown]
  - Polychondritis [Recovered/Resolved]
  - Injection site swelling [Unknown]
  - Surgery [Unknown]
  - Alopecia [Unknown]
  - Headache [Unknown]

NARRATIVE: CASE EVENT DATE: 201509
